FAERS Safety Report 17230128 (Version 4)
Quarter: 2020Q2

REPORT INFORMATION
  Report Type: Spontaneous
  Country: IT (occurrence: IT)
  Receive Date: 20200103
  Receipt Date: 20200624
  Transmission Date: 20200713
  Serious: Yes (Life-Threatening, Hospitalization, Other)
  Sender: FDA-Public Use
  Company Number: IT-PFIZER INC-2019559594

PATIENT
  Age: 63 Year
  Sex: Male

DRUGS (3)
  1. MESALAZINE [Suspect]
     Active Substance: MESALAMINE
     Indication: COLITIS ULCERATIVE
  2. MESALAZINE [Suspect]
     Active Substance: MESALAMINE
     Indication: EVIDENCE BASED TREATMENT
     Dosage: 800 MG, 3X/DAY
     Route: 048
  3. SALAZOPYRIN [Suspect]
     Active Substance: SULFASALAZINE
     Indication: RHEUMATOID ARTHRITIS
     Dosage: UNK
     Route: 048

REACTIONS (9)
  - Helicobacter gastritis [Recovered/Resolved]
  - Acute kidney injury [Recovered/Resolved]
  - Infection reactivation [Recovered/Resolved]
  - Drug reaction with eosinophilia and systemic symptoms [Recovered/Resolved]
  - Thrombocytopenia [Recovered/Resolved]
  - Hepatic steatosis [Recovered/Resolved]
  - Colitis ulcerative [Recovered/Resolved]
  - Cholestasis [Recovered/Resolved]
  - Serum ferritin increased [Recovered/Resolved]
